FAERS Safety Report 5660069-3 (Version None)
Quarter: 2008Q1

REPORT INFORMATION
  Report Type: 
  Country: None (occurrence: None)
  Receive Date: 20080311
  Receipt Date: 20070913
  Transmission Date: 20080703
  Serious: No
  Sender: FDA-Public Use
  Company Number: US-BAYER-200712931BCC

PATIENT
  Age: 78 Year
  Sex: Female
  Weight: 84 kg

DRUGS (15)
  1. ALEVE [Suspect]
     Indication: ABDOMINAL PAIN UPPER
     Dosage: TOTAL DAILY DOSE: 220 MG  UNIT DOSE: 220 MG
     Route: 048
     Dates: start: 20070911
  2. ALEVE [Suspect]
     Dosage: TOTAL DAILY DOSE: 220 MG  UNIT DOSE: 220 MG
     Route: 048
     Dates: start: 20070912
  3. ASPIRIN [Suspect]
     Indication: PROPHYLAXIS
     Dosage: TOTAL DAILY DOSE: 81 MG  UNIT DOSE: 81 MG
     Route: 048
  4. ZESTORETIC [Concomitant]
  5. SYNTHROID [Concomitant]
  6. LASIX [Concomitant]
  7. LOVASTATIN [Concomitant]
  8. GLIPIZIDE [Concomitant]
  9. ASCORBIC ACID [Concomitant]
  10. ONE SOURCE WOMENS VITAMINS [Concomitant]
  11. SUPER B COMPLEX [Concomitant]
  12. CALCIUM [Concomitant]
  13. ACIDOPHILUS [Concomitant]
  14. IRON [Concomitant]
  15. FISH OIL [Concomitant]

REACTIONS (1)
  - DIARRHOEA [None]
